FAERS Safety Report 4495241-1 (Version None)
Quarter: 2004Q4

REPORT INFORMATION
  Report Type: 
  Country: None (occurrence: None)
  Receive Date: 20041108
  Receipt Date: 20040726
  Transmission Date: 20050328
  Serious: No
  Sender: FDA-Public Use
  Company Number: US-GLAXOSMITHKLINE-A0519713A

PATIENT
  Age: 59 Year
  Sex: Female

DRUGS (5)
  1. AVANDAMET [Suspect]
     Dosage: 1TAB TWICE PER DAY
     Route: 048
  2. ALTACE [Concomitant]
  3. CRESTOR [Concomitant]
  4. NEXIUM [Concomitant]
  5. CELEBREX [Concomitant]

REACTIONS (3)
  - BALANCE DISORDER [None]
  - DIZZINESS [None]
  - MYALGIA [None]
